FAERS Safety Report 19185238 (Version 1)
Quarter: 2021Q2

REPORT INFORMATION
  Report Type: Spontaneous
  Country: DE (occurrence: DE)
  Receive Date: 20210427
  Receipt Date: 20210427
  Transmission Date: 20210717
  Serious: Yes (Hospitalization)
  Sender: FDA-Public Use
  Company Number: DE-SUN PHARMACEUTICAL INDUSTRIES LTD-2021RR-293264

PATIENT
  Sex: Female

DRUGS (4)
  1. OXALIPLATIN. [Suspect]
     Active Substance: OXALIPLATIN
     Indication: ADENOCARCINOMA OF COLON
     Dosage: 4. GABE ()
     Route: 065
  2. OXALIPLATIN TILLOMED 5 MG/ML CONCENTRATE FOR INFUSION [Suspect]
     Active Substance: OXALIPLATIN
     Indication: ADENOCARCINOMA OF COLON
     Dosage: 2. GABE ()
     Route: 065
  3. CAPECITABIN [Concomitant]
     Active Substance: CAPECITABINE
     Indication: PRODUCT USED FOR UNKNOWN INDICATION
     Dosage: UNK
     Route: 065
  4. CLEMASTIN [Concomitant]
     Active Substance: CLEMASTINE
     Indication: PREMEDICATION
     Dosage: PREMEDICATION AT THE 4TH ADMINISTRATION ()
     Route: 065

REACTIONS (3)
  - Dyspnoea [Recovered/Resolved]
  - Stridor [Recovered/Resolved]
  - Pharyngeal swelling [Recovered/Resolved]
